FAERS Safety Report 8808388 (Version 4)
Quarter: 2013Q4

REPORT INFORMATION
  Report Type: Spontaneous
  Country: US (occurrence: US)
  Receive Date: 20120926
  Receipt Date: 20131004
  Transmission Date: 20140711
  Serious: No
  Sender: FDA-Public Use
  Company Number: US-PFIZER INC-2012236898

PATIENT
  Sex: Female

DRUGS (6)
  1. NEURONTIN [Suspect]
     Indication: SCIATICA
     Dosage: 300 MG, 2X/DAY
     Route: 048
     Dates: start: 2009, end: 2009
  2. NEURONTIN [Suspect]
     Indication: SPONDYLITIS
     Dosage: 300 MG, 2X/DAY
     Route: 048
     Dates: start: 2012, end: 2012
  3. NEURONTIN [Suspect]
     Dosage: ONE 300MG CAPSULE IN MORNING AND TWO 300MG CAPSULES IN THE EVENING
     Route: 048
     Dates: start: 2012
  4. PROTONIX [Suspect]
     Dosage: UNK
  5. ZOLOFT [Suspect]
     Dosage: UNK
  6. PREMPRO [Suspect]
     Dosage: UNK

REACTIONS (8)
  - Feeling abnormal [Not Recovered/Not Resolved]
  - Dizziness [Not Recovered/Not Resolved]
  - Balance disorder [Not Recovered/Not Resolved]
  - Oropharyngeal pain [Unknown]
  - Gastrooesophageal reflux disease [Unknown]
  - Pain [Unknown]
  - Hot flush [Unknown]
  - Headache [Not Recovered/Not Resolved]
